FAERS Safety Report 9070510 (Version 1)
Quarter: 2013Q1

REPORT INFORMATION
  Report Type: Report from Study
  Country: US (occurrence: US)
  Receive Date: 20130129
  Receipt Date: 20130129
  Transmission Date: 20140127
  Serious: Yes (Hospitalization)
  Sender: FDA-Public Use
  Company Number: US-ABBOTT-12P-163-0920026-00

PATIENT
  Age: 66 Year
  Sex: Female

DRUGS (15)
  1. HUMIRA 40 MG/0.8 ML PEN [Suspect]
     Indication: CROHN^S DISEASE
     Dates: start: 201002
  2. HUMIRA 40 MG/0.8 ML PEN [Suspect]
  3. ISOSORBIDE [Suspect]
     Indication: GASTROOESOPHAGEAL REFLUX DISEASE
     Dosage: DAILY
  4. ISOSORBIDE [Suspect]
     Dosage: DAILY
  5. DEXALINT [Suspect]
     Indication: GASTROOESOPHAGEAL REFLUX DISEASE
  6. CARAFATE [Suspect]
     Indication: GASTROOESOPHAGEAL REFLUX DISEASE
  7. PREVACID [Suspect]
     Indication: GASTROOESOPHAGEAL REFLUX DISEASE
  8. LOVENOX [Concomitant]
     Indication: THROMBOSIS
  9. SPIRIVA [Concomitant]
     Indication: CHRONIC OBSTRUCTIVE PULMONARY DISEASE
     Dosage: DAILY
  10. SPIRIVA [Concomitant]
     Indication: EMPHYSEMA
  11. FLOUIDAL [Concomitant]
     Indication: CHRONIC OBSTRUCTIVE PULMONARY DISEASE
  12. FLOUIDAL [Concomitant]
     Indication: EMPHYSEMA
  13. TOPROL [Concomitant]
     Indication: PRODUCT USED FOR UNKNOWN INDICATION
  14. CRESTOR [Concomitant]
     Indication: PRODUCT USED FOR UNKNOWN INDICATION
  15. SYNTHROID [Concomitant]
     Indication: HYPOTHYROIDISM
     Dosage: 0.125/0.15MCG ON ALTERNATING DAYS

REACTIONS (8)
  - Chest pain [Not Recovered/Not Resolved]
  - Chest pain [Unknown]
  - Chest pain [Unknown]
  - Gastrooesophageal reflux disease [Unknown]
  - Diarrhoea [Unknown]
  - Sleep apnoea syndrome [Unknown]
  - Fatigue [Unknown]
  - Alopecia [Unknown]
